FAERS Safety Report 9868420 (Version 2)
Quarter: 2014Q1

REPORT INFORMATION
  Report Type: Report from Study
  Country: GB (occurrence: GB)
  Receive Date: 20140204
  Receipt Date: 20140218
  Transmission Date: 20141002
  Serious: Yes (Death, Hospitalization)
  Sender: FDA-Public Use
  Company Number: GB-INCYTE CORPORATION-2014IN000182

PATIENT
  Age: 77 Year
  Sex: Female

DRUGS (17)
  1. INC424 [Suspect]
     Indication: POLYCYTHAEMIA VERA
     Dosage: 200 MG, BID
     Route: 048
     Dates: start: 20121024, end: 20140114
  2. FYBOGEL [Concomitant]
  3. BRINZOLAMIDE EYE DROPS [Concomitant]
  4. TIMOLOL EYE DROPS [Concomitant]
  5. BACLOFEN [Concomitant]
  6. ADCAL D3 [Concomitant]
  7. ASPIRIN [Concomitant]
  8. FUROSEMIDE [Concomitant]
  9. ALENDRONATE [Concomitant]
  10. SIMVASTATIN [Concomitant]
  11. SALBUTAMOL [Concomitant]
  12. LATANOPROST EYE DROPS [Concomitant]
  13. ENOXAPARIN SODIUM [Concomitant]
  14. DOCUSATE SODIUM [Concomitant]
  15. PARACETAMOL [Concomitant]
  16. SALINE [Concomitant]
  17. HYOSCINE BUTYLBROMIDE [Concomitant]

REACTIONS (3)
  - Pneumonia [Fatal]
  - Tibia fracture [Unknown]
  - Fall [Unknown]
